FAERS Safety Report 21354118 (Version 1)
Quarter: 2022Q3

REPORT INFORMATION
  Report Type: Spontaneous
  Country: FR (occurrence: FR)
  Receive Date: 20220920
  Receipt Date: 20220920
  Transmission Date: 20221027
  Serious: Yes (Hospitalization, Other)
  Sender: FDA-Public Use
  Company Number: FR-AFSSAPS-CN20221719

PATIENT
  Age: 70 Year
  Sex: Female
  Weight: 67 kg

DRUGS (3)
  1. GEMCITABINE [Suspect]
     Active Substance: GEMCITABINE
     Indication: Invasive ductal breast carcinoma
     Dosage: 2200 MG
     Route: 040
     Dates: start: 20220114, end: 20220607
  2. GEMCITABINE [Suspect]
     Active Substance: GEMCITABINE
     Dosage: 2200 MILLIGRAM, 1DOSE/28DAYS
     Route: 065
     Dates: start: 20220628, end: 20220705
  3. GEMCITABINE [Suspect]
     Active Substance: GEMCITABINE
     Dosage: 4400 MILLIGRAM, 1DOSE/28DAYS
     Route: 065
     Dates: start: 20220712, end: 20220719

REACTIONS (2)
  - Acute kidney injury [Recovering/Resolving]
  - Thrombotic microangiopathy [Recovering/Resolving]

NARRATIVE: CASE EVENT DATE: 20220802
